FAERS Safety Report 8058684-5 (Version None)
Quarter: 2012Q1

REPORT INFORMATION
  Report Type: 
  Country: None (occurrence: None)
  Receive Date: 20120120
  Receipt Date: 20120113
  Transmission Date: 20120608
  Serious: Yes (Other)
  Sender: FDA-Public Use
  Company Number: US-JNJFOC-20111203840

PATIENT
  Sex: Female

DRUGS (14)
  1. TOPAMAX [Suspect]
     Indication: DEPRESSION
     Route: 048
     Dates: start: 20080501, end: 20090501
  2. GABAPENTIN [Suspect]
     Indication: ANXIETY
     Route: 065
  3. TRAZODONE HCL [Suspect]
     Indication: INSOMNIA
     Route: 065
  4. TOPAMAX [Suspect]
     Indication: BIPOLAR DISORDER
     Route: 048
     Dates: start: 20080501, end: 20090501
  5. TOPAMAX [Suspect]
     Indication: ANXIETY
     Route: 048
     Dates: start: 20080501, end: 20090501
  6. EFFEXOR [Suspect]
     Indication: DEPRESSION
     Route: 065
  7. OMEPRAZOLE [Suspect]
     Indication: PRODUCT USED FOR UNKNOWN INDICATION
     Route: 048
  8. MULTI-VITAMINS [Concomitant]
     Route: 065
  9. GABAPENTIN [Suspect]
     Indication: DEPRESSION
     Route: 065
  10. XANAX [Suspect]
     Indication: ANXIETY
     Route: 065
  11. PAXIL [Suspect]
     Indication: DEPRESSION
     Route: 065
  12. SEROQUEL [Suspect]
     Indication: DEPRESSION
     Route: 065
  13. NEXIUM [Suspect]
     Indication: PRODUCT USED FOR UNKNOWN INDICATION
     Route: 065
  14. AMBIEN [Suspect]
     Indication: PRODUCT USED FOR UNKNOWN INDICATION
     Route: 048

REACTIONS (3)
  - PREMATURE LABOUR [None]
  - MATERNAL EXPOSURE DURING PREGNANCY [None]
  - ANXIETY [None]
